FAERS Safety Report 7987607-X (Version None)
Quarter: 2011Q4

REPORT INFORMATION
  Report Type: 
  Country: None (occurrence: None)
  Receive Date: 20111216
  Receipt Date: 20110824
  Transmission Date: 20120403
  Serious: No
  Sender: FDA-Public Use
  Company Number: US-BRISTOL-MYERS SQUIBB COMPANY-12153680

PATIENT
  Age: 31 Year
  Sex: Female
  Weight: 89 kg

DRUGS (12)
  1. ABILIFY [Suspect]
     Dosage: ALSO ON 6 MG/DAY
     Route: 048
     Dates: start: 20021223
  2. ESTER-C [Concomitant]
  3. LEXAPRO [Concomitant]
     Dosage: 1 DF=LEXAPRO 5 MG TAB
  4. LUTEIN [Concomitant]
  5. OMEGA [Concomitant]
  6. GLUCOPHAGE [Suspect]
     Indication: INSULIN RESISTANT DIABETES
     Route: 048
  7. LEVOTHROID [Concomitant]
  8. VITAMIN E [Concomitant]
  9. NAPROSYN [Concomitant]
  10. AMBIEN [Concomitant]
  11. VITAMIN D [Concomitant]
  12. MULTI-VITAMIN [Concomitant]

REACTIONS (7)
  - DIARRHOEA [None]
  - DIZZINESS [None]
  - NIGHT SWEATS [None]
  - NAUSEA [None]
  - INSOMNIA [None]
  - YAWNING [None]
  - PERIPHERAL COLDNESS [None]
